FAERS Safety Report 17567447 (Version 11)
Quarter: 2022Q1

REPORT INFORMATION
  Report Type: Spontaneous
  Country: US (occurrence: US)
  Receive Date: 20200320
  Receipt Date: 20220104
  Transmission Date: 20220423
  Serious: Yes (Other)
  Sender: FDA-Public Use
  Company Number: US-PFIZER INC-2019361927

PATIENT
  Age: 60 Year
  Sex: Male

DRUGS (2)
  1. LYRICA [Suspect]
     Active Substance: PREGABALIN
     Indication: Complex regional pain syndrome
     Dosage: 100 MG, 3X/DAY
     Route: 048
     Dates: start: 20190821
  2. LAMOTRIGINE [Concomitant]
     Active Substance: LAMOTRIGINE
     Dosage: UNK (LOW DOSE)

REACTIONS (12)
  - Neuropathy peripheral [Unknown]
  - Dementia [Unknown]
  - Autoimmune disorder [Unknown]
  - Off label use [Unknown]
  - Chronic obstructive pulmonary disease [Unknown]
  - Dyslexia [Unknown]
  - Movement disorder [Unknown]
  - Weight increased [Unknown]
  - Amnesia [Unknown]
  - Suspected COVID-19 [Unknown]
  - Gait inability [Unknown]
  - Haemoglobin decreased [Unknown]
